FAERS Safety Report 9706765 (Version 2)
Quarter: 2013Q4

REPORT INFORMATION
  Report Type: Spontaneous
  Country: CA (occurrence: CA)
  Receive Date: 20131125
  Receipt Date: 20131219
  Transmission Date: 20140711
  Serious: Yes (Other)
  Sender: FDA-Public Use
  Company Number: PHHY2013CA135103

PATIENT
  Sex: Female

DRUGS (3)
  1. AFINITOR [Suspect]
     Dosage: 10 MG, UNK
     Route: 048
     Dates: start: 2013
  2. AFINITOR [Suspect]
     Dosage: 5 MG, UNK
  3. TAMOXIFEN [Concomitant]

REACTIONS (2)
  - Lung disorder [Recovered/Resolved]
  - Cough [Recovered/Resolved]
